FAERS Safety Report 7385095-8 (Version None)
Quarter: 2011Q1

REPORT INFORMATION
  Report Type: 
  Country: None (occurrence: None)
  Receive Date: 20110330
  Receipt Date: 20110316
  Transmission Date: 20110831
  Serious: Yes (Other)
  Sender: FDA-Public Use
  Company Number: JP-ROCHE-768043

PATIENT
  Age: 71 Year
  Sex: Male

DRUGS (15)
  1. ELPLAT [Concomitant]
     Route: 041
     Dates: start: 20090901
  2. ELPLAT [Concomitant]
     Route: 041
     Dates: start: 20100301
  3. FLUOROURACIL [Concomitant]
     Dosage: FORM:INTRAVENOUS BOLUS
     Route: 041
     Dates: start: 20090901
  4. IRINOTECAN HYDROCHLORIDE [Concomitant]
     Route: 041
     Dates: start: 20090901
  5. XELODA [Suspect]
     Indication: COLON CANCER METASTATIC
     Route: 048
     Dates: start: 20100301, end: 20100101
  6. FLUOROURACIL [Concomitant]
     Dosage: FORM INTRAVENOUS DRIP.
     Route: 041
     Dates: start: 20090901
  7. FLUOROURACIL [Concomitant]
     Route: 041
     Dates: start: 20081001, end: 20090701
  8. LEVOFOLINATE [Concomitant]
     Route: 041
     Dates: start: 20080101, end: 20090101
  9. LEVOFOLINATE [Concomitant]
     Route: 041
     Dates: start: 20090901
  10. AVASTIN [Suspect]
     Indication: COLON CANCER METASTATIC
     Route: 041
     Dates: start: 20081001, end: 20090701
  11. AVASTIN [Suspect]
     Route: 041
     Dates: start: 20090901
  12. AVASTIN [Suspect]
     Route: 041
     Dates: start: 20100301, end: 20100101
  13. IRINOTECAN HYDROCHLORIDE [Concomitant]
     Route: 041
     Dates: start: 20080101, end: 20090101
  14. ELPLAT [Concomitant]
     Route: 041
     Dates: start: 20081001, end: 20090101
  15. FLUOROURACIL [Concomitant]
     Dosage: FORM; INTRAVENOUS BOLUS.
     Route: 041
     Dates: start: 20081001, end: 20090701

REACTIONS (2)
  - SKIN DISORDER [None]
  - DIABETIC GANGRENE [None]
